FAERS Safety Report 9211071 (Version 2)
Quarter: 2013Q2

REPORT INFORMATION
  Report Type: Spontaneous
  Country: US (occurrence: US)
  Receive Date: 20130404
  Receipt Date: 20130423
  Transmission Date: 20140414
  Serious: Yes (Death)
  Sender: FDA-Public Use
  Company Number: US-FRI-1000043903

PATIENT
  Age: 87 Year
  Sex: Male
  Weight: 79.37 kg

DRUGS (12)
  1. NAMENDA [Suspect]
     Indication: DEMENTIA
     Dosage: 20MG
     Route: 048
     Dates: start: 201002, end: 20130218
  2. ATENOLOL [Concomitant]
     Indication: HYPERTENSION
     Dosage: 100MG
  3. BUPROPION [Concomitant]
     Indication: DEPRESSION
     Dosage: 150MG
  4. SINEMET [Concomitant]
     Indication: PARKINSON^S DISEASE
     Dosage: FOUR TIMES DAILY
  5. CITALOPRAM [Concomitant]
     Indication: DEPRESSION
     Dosage: 20MG
  6. GABAPENTIN [Concomitant]
     Indication: NEUROPATHY PERIPHERAL
     Dosage: 1800MG
  7. LIDODERM [Concomitant]
     Indication: BACK PAIN
     Dosage: 5% PATCH
  8. OXYBUTYNIN [Concomitant]
     Indication: URINARY INCONTINENCE
     Dosage: 15MG
  9. PANTOPRAZOLE [Concomitant]
     Indication: GASTROOESOPHAGEAL REFLUX DISEASE
     Dosage: 40MG
  10. TEMAZEPAM [Concomitant]
     Indication: INSOMNIA
     Dosage: 15MG
  11. VANCOMYCIN [Concomitant]
     Indication: CLOSTRIDIAL INFECTION
     Dosage: 125MG
  12. PROSCAR [Concomitant]
     Indication: BENIGN PROSTATIC HYPERPLASIA
     Dosage: 5MG

REACTIONS (1)
  - Death [Fatal]
